FAERS Safety Report 20683081 (Version 1)
Quarter: 2022Q2

REPORT INFORMATION
  Report Type: Report from Study
  Country: US (occurrence: US)
  Receive Date: 20220407
  Receipt Date: 20220407
  Transmission Date: 20220721
  Serious: Yes (Hospitalization)
  Sender: FDA-Public Use
  Company Number: US-SA-2017SA093914

PATIENT
  Age: 8 Year
  Sex: Female
  Weight: 40 kg

DRUGS (1)
  1. ALGLUCOSIDASE ALFA [Suspect]
     Active Substance: ALGLUCOSIDASE ALFA
     Indication: Glycogen storage disease type II
     Dosage: 20 MG/KG, QW
     Route: 042
     Dates: start: 20140925, end: 2017

REACTIONS (6)
  - Malaise [Unknown]
  - Hospitalisation [Not Recovered/Not Resolved]
  - Oxygen saturation decreased [Unknown]
  - Heart rate decreased [Unknown]
  - General physical health deterioration [Not Recovered/Not Resolved]
  - Diarrhoea [Not Recovered/Not Resolved]

NARRATIVE: CASE EVENT DATE: 20170518
